FAERS Safety Report 14315422 (Version 4)
Quarter: 2018Q3

REPORT INFORMATION
  Report Type: Spontaneous
  Country: PL (occurrence: PL)
  Receive Date: 20171221
  Receipt Date: 20180912
  Transmission Date: 20181010
  Serious: Yes (Other)
  Sender: FDA-Public Use
  Company Number: PL-MYLANLABS-2017M1079941

PATIENT
  Age: 12 Year
  Sex: Male

DRUGS (8)
  1. MYCOPHENOLATE MOFETIL. [Suspect]
     Active Substance: MYCOPHENOLATE MOFETIL
     Indication: NEPHROTIC SYNDROME
     Dosage: 2000 MG, UNK
  2. MYCOPHENOLATE MOFETIL. [Suspect]
     Active Substance: MYCOPHENOLATE MOFETIL
     Dosage: INITIAL DOSAGE NOT STATED
     Route: 065
     Dates: start: 2013
  3. CYCLOPHOSPHAMIDE. [Suspect]
     Active Substance: CYCLOPHOSPHAMIDE
     Indication: NEPHROTIC SYNDROME
     Dosage: UNK
     Dates: start: 2008, end: 2009
  4. MYCOPHENOLATE MOFETIL. [Suspect]
     Active Substance: MYCOPHENOLATE MOFETIL
     Indication: IMMUNOSUPPRESSION
     Dosage: MMF 2X1000 MG (650 MG/M2)
     Route: 065
     Dates: start: 2014
  5. PREDNISONE. [Interacting]
     Active Substance: PREDNISONE
     Indication: NEPHROTIC SYNDROME
     Dosage: 5 MG, QD DIRECTLY AFTER RITUXIMAB TREATMENT
     Dates: start: 2014
  6. METHYLPREDNISOLONE. [Interacting]
     Active Substance: METHYLPREDNISOLONE
     Indication: NEPHROTIC SYNDROME
     Dosage: UNK PULSES
     Dates: start: 201401
  7. RITUXIMAB. [Interacting]
     Active Substance: RITUXIMAB
     Indication: NEPHROTIC SYNDROME
     Dosage: TWO DOSES OF 375MG/M2 OF RITUXIMAB, WITH 1WEEK GAP BETWEEN THE TWO DOSES
     Route: 065
     Dates: start: 201408
  8. CICLOSPORIN [Interacting]
     Active Substance: CYCLOSPORINE
     Indication: NEPHROTIC SYNDROME
     Dosage: UNK
     Route: 065
     Dates: start: 2004

REACTIONS (6)
  - Neutrophil Pelger-Huet anomaly present [Recovered/Resolved]
  - Product use in unapproved indication [Unknown]
  - Drug interaction [Recovered/Resolved]
  - Blood disorder [Recovered/Resolved]
  - Nephropathy toxic [Recovering/Resolving]
  - Granulocytes abnormal [Recovered/Resolved]

NARRATIVE: CASE EVENT DATE: 2014
